FAERS Safety Report 13050165 (Version 3)
Quarter: 2017Q2

REPORT INFORMATION
  Report Type: Report from Study
  Country: US (occurrence: US)
  Receive Date: 20161221
  Receipt Date: 20170403
  Transmission Date: 20170830
  Serious: Yes (Death)
  Sender: FDA-Public Use
  Company Number: PHEH2016US033038

PATIENT
  Age: 83 Year
  Sex: Female

DRUGS (1)
  1. PROMACTA [Suspect]
     Active Substance: ELTROMBOPAG OLAMINE
     Indication: PANCYTOPENIA
     Dosage: 25 MG, QD
     Route: 048
     Dates: start: 20160926

REACTIONS (1)
  - Death [Fatal]

NARRATIVE: CASE EVENT DATE: 20161203
